FAERS Safety Report 12162887 (Version 1)
Quarter: 2016Q1

REPORT INFORMATION
  Report Type: Spontaneous
  Country: US (occurrence: US)
  Receive Date: 20160309
  Receipt Date: 20160309
  Transmission Date: 20160526
  Serious: Yes (Other)
  Sender: FDA-Public Use
  Company Number: US-LPDUSPRD-20160101

PATIENT
  Age: 56 Year
  Sex: Male
  Weight: 83.2 kg

DRUGS (13)
  1. MIDAZOLAM [Concomitant]
     Active Substance: MIDAZOLAM\MIDAZOLAM HYDROCHLORIDE
     Dosage: 2 MG X 1
     Route: 040
     Dates: start: 20160126, end: 20160126
  2. ASPIRIN. [Concomitant]
     Active Substance: ASPIRIN
     Dosage: 325 MG TWICE A DAY
     Route: 048
  3. NORCO GEG [Concomitant]
     Dosage: 7.5/325 EVERY 4H PRN
     Route: 048
  4. ALEVE [Concomitant]
     Active Substance: NAPROXEN SODIUM
     Dosage: PRN
     Route: 065
  5. CEFAZOLIN [Concomitant]
     Active Substance: CEFAZOLIN
     Dosage: 2 GM X 1 DOSE
     Route: 042
     Dates: start: 20160126, end: 20160126
  6. RANITIDINE [Concomitant]
     Active Substance: RANITIDINE\RANITIDINE HYDROCHLORIDE
     Dosage: 150 MG X1
     Route: 048
     Dates: start: 20160126, end: 20160126
  7. DEXAMETHASONE SODIUM PHOSPHATE INJECTION, USP (4901-25) [Concomitant]
     Active Substance: DEXAMETHASONE SODIUM PHOSPHATE
     Dosage: 8MG X 1 DOSE
     Route: 040
     Dates: start: 20160126, end: 20160126
  8. VANCOMYCIN [Concomitant]
     Active Substance: VANCOMYCIN
     Dosage: 1.5 GM X 1 DOSE
     Route: 042
     Dates: start: 20160126, end: 20160126
  9. CELECOXIB. [Concomitant]
     Active Substance: CELECOXIB
     Dosage: 200 MG X1
     Route: 048
     Dates: start: 20160126, end: 20160126
  10. TRANEXAMIC ACID INJECTION(0517-0960-10) [Suspect]
     Active Substance: TRANEXAMIC ACID
     Dosage: 1 GM X 2 DOSES
     Route: 042
     Dates: start: 20160126, end: 20160126
  11. METOCLOPRAMIDE. [Concomitant]
     Active Substance: METOCLOPRAMIDE
     Dosage: 10 MG X 1
     Route: 048
     Dates: start: 20160126, end: 20160126
  12. ADVIL [Concomitant]
     Active Substance: IBUPROFEN
     Dosage: PRN
     Route: 065
  13. PANTOPRAZOLE [Concomitant]
     Active Substance: PANTOPRAZOLE SODIUM
     Dosage: 40 MG DAILY
     Route: 048

REACTIONS (4)
  - Heart rate decreased [Unknown]
  - Hypertension [Unknown]
  - Nausea [Recovered/Resolved]
  - Hyperhidrosis [Recovered/Resolved]

NARRATIVE: CASE EVENT DATE: 20160126
